FAERS Safety Report 6144880-0 (Version None)
Quarter: 2009Q2

REPORT INFORMATION
  Report Type: 
  Country: None (occurrence: None)
  Receive Date: 20090401
  Receipt Date: 20090401
  Transmission Date: 20091009
  Serious: Yes (Hospitalization)
  Sender: FDA-Public Use
  Company Number: None

PATIENT
  Age: 77 Year
  Sex: Male
  Weight: 83 kg

DRUGS (14)
  1. PHENYTOIN [Suspect]
     Indication: CONVULSION
     Dosage: 500 MG DAILY PO, PRIOR TO ADMISSION
     Route: 048
  2. ASPIRIN [Concomitant]
  3. AZATHIOPRINE [Concomitant]
  4. CALCIUM ACETATE [Concomitant]
  5. CALCIUM CARBONATE [Concomitant]
  6. CLONIDINE [Concomitant]
  7. DOXERCALCIFEROL [Concomitant]
  8. ESOMEPRAZOLE MAGNESIUM [Concomitant]
  9. METOPROLOL TARTRATE [Concomitant]
  10. MULTIVITIMAN [Concomitant]
  11. PREDNISONE [Concomitant]
  12. TRIMETHOPRIM + SULFAMETHOXAZOLE [Concomitant]
  13. VALSARTAN [Concomitant]
  14. WARFARIN SODIUM [Concomitant]

REACTIONS (11)
  - ABDOMINAL PAIN [None]
  - ANTICONVULSANT DRUG LEVEL ABOVE THERAPEUTIC [None]
  - BRADYCARDIA [None]
  - CARDIAC ARREST [None]
  - CHOLELITHIASIS [None]
  - DIZZINESS [None]
  - FALL [None]
  - HEPATIC NECROSIS [None]
  - HIP FRACTURE [None]
  - INTERNATIONAL NORMALISED RATIO INCREASED [None]
  - LIVER FUNCTION TEST ABNORMAL [None]
